FAERS Safety Report 8808740 (Version 1)
Quarter: 2012Q4

REPORT INFORMATION
  Report Type: 
  Country: MY (occurrence: MY)
  Receive Date: 20120926
  Receipt Date: 20120926
  Transmission Date: 20130627
  Serious: Yes (Other)
  Sender: FDA-Public Use
  Company Number: MY-RANBAXY-2012R3-60105

PATIENT
  Age: 75 Year
  Sex: Female

DRUGS (3)
  1. CLAVAM [Suspect]
     Indication: BRONCHOPNEUMONIA
     Dosage: 4 gm daily
     Route: 042
  2. LESTRIC [Suspect]
     Indication: DYSLIPIDAEMIA
     Dosage: 20 mg daily
     Route: 048
  3. PERINDOPRIL [Concomitant]
     Indication: PRODUCT USED FOR UNKNOWN INDICATION
     Dosage: UNK
     Route: 065

REACTIONS (3)
  - Jaundice cholestatic [Not Recovered/Not Resolved]
  - Hepatic enzyme increased [Not Recovered/Not Resolved]
  - Renal failure acute [Not Recovered/Not Resolved]
